FAERS Safety Report 13566457 (Version 1)
Quarter: 2017Q2

REPORT INFORMATION
  Report Type: Spontaneous
  Country: US (occurrence: US)
  Receive Date: 20170522
  Receipt Date: 20170522
  Transmission Date: 20170830
  Serious: No
  Sender: FDA-Public Use
  Company Number: US-ASTRAZENECA-2017SE53310

PATIENT
  Age: 68 Year
  Sex: Female

DRUGS (2)
  1. NEXIUM 24HR [Suspect]
     Active Substance: ESOMEPRAZOLE MAGNESIUM
     Indication: GASTROOESOPHAGEAL REFLUX DISEASE
     Dosage: ONE CAPSULE TWICE A DAY, (1 CAPSULE IN THE MORNING AND 1 CAPSULE AT NIGHT)
     Route: 048
  2. NEXIUM 24HR [Suspect]
     Active Substance: ESOMEPRAZOLE MAGNESIUM
     Indication: GASTROOESOPHAGEAL REFLUX DISEASE
     Dosage: 2 DF, DAILY (TAKING 2 CAPSULES A DAY)
     Route: 048

REACTIONS (3)
  - Product use in unapproved indication [Unknown]
  - Chest pain [Recovering/Resolving]
  - Intentional product misuse [Unknown]
